FAERS Safety Report 5041553-2 (Version None)
Quarter: 2006Q2

REPORT INFORMATION
  Report Type: 
  Country: None (occurrence: None)
  Receive Date: 20060628
  Receipt Date: 20060615
  Transmission Date: 20061013
  Serious: Yes (Other)
  Sender: FDA-Public Use
  Company Number: B0428764A

PATIENT
  Sex: Female

DRUGS (2)
  1. COMBIVIR [Suspect]
  2. NELFINAVIR MESYLATE      (NELFINAVIR MESYLATE) [Suspect]

REACTIONS (2)
  - DRUG EXPOSURE DURING PREGNANCY [None]
  - PREMATURE RUPTURE OF MEMBRANES [None]
